FAERS Safety Report 5334186-1 (Version None)
Quarter: 2007Q2

REPORT INFORMATION
  Report Type: 
  Country: None (occurrence: None)
  Receive Date: 20070523
  Receipt Date: 20070523
  Transmission Date: 20071010
  Serious: Yes (Other)
  Sender: FDA-Public Use
  Company Number: None

PATIENT
  Sex: Male
  Weight: 70.3075 kg

DRUGS (1)
  1. PANDEL [Suspect]
     Indication: RASH
     Dosage: DAILY TOPICAL
     Route: 061
     Dates: start: 20061020, end: 20061023

REACTIONS (5)
  - PRURITUS [None]
  - RASH [None]
  - SCRATCH [None]
  - SKIN DISCOLOURATION [None]
  - SKIN EXFOLIATION [None]
